FAERS Safety Report 8347308-5 (Version None)
Quarter: 2012Q2

REPORT INFORMATION
  Report Type: 
  Country: None (occurrence: None)
  Receive Date: 20120509
  Receipt Date: 20120504
  Transmission Date: 20120825
  Serious: Yes (Other)
  Sender: FDA-Public Use
  Company Number: US-ROCHE-1022728

PATIENT

DRUGS (2)
  1. NUTROPIN AQ [Suspect]
     Dates: start: 20111215
  2. NUTROPIN AQ [Suspect]
     Indication: TYPE IIA HYPERLIPIDAEMIA
     Dates: start: 20110601, end: 20111214

REACTIONS (1)
  - HEPATIC CIRRHOSIS [None]
